FAERS Safety Report 5192628-9 (Version None)
Quarter: 2006Q4

REPORT INFORMATION
  Report Type: 
  Country: None (occurrence: None)
  Receive Date: 20061228
  Receipt Date: 20061216
  Transmission Date: 20070319
  Serious: Yes (Death, Hospitalization)
  Sender: FDA-Public Use
  Company Number: US-JNJFOC-20061205120

PATIENT
  Sex: Female
  Weight: 77.11 kg

DRUGS (2)
  1. REMICADE [Suspect]
     Dosage: 8 VIALS
     Route: 042
  2. REMICADE [Suspect]
     Indication: CROHN'S DISEASE
     Dosage: 8 VIALS
     Route: 042

REACTIONS (4)
  - BLOOD GLUCOSE INCREASED [None]
  - CROHN'S DISEASE [None]
  - DEATH [None]
  - UNRESPONSIVE TO STIMULI [None]
